FAERS Safety Report 7426828-1 (Version None)
Quarter: 2011Q2

REPORT INFORMATION
  Report Type: 
  Country: None (occurrence: None)
  Receive Date: 20110420
  Receipt Date: 20110414
  Transmission Date: 20111010
  Serious: Yes (Hospitalization)
  Sender: FDA-Public Use
  Company Number: JP-MPIJNJ-2011-00391

PATIENT

DRUGS (18)
  1. BAKTAR [Concomitant]
     Indication: CYSTITIS
     Dosage: 1 DF, UNK
     Route: 048
     Dates: start: 20091002
  2. ZOVIRAX                            /00587301/ [Concomitant]
     Indication: HERPES ZOSTER
     Dosage: 200 MG, UNK
     Route: 048
     Dates: start: 20091013
  3. DASEN [Concomitant]
     Indication: UPPER RESPIRATORY TRACT INFLAMMATION
     Dosage: 30 MG, UNK
     Route: 048
     Dates: start: 20101213, end: 20101225
  4. MEDICON                            /00048102/ [Concomitant]
     Indication: UPPER RESPIRATORY TRACT INFLAMMATION
     Dosage: 45 MG, UNK
     Route: 048
     Dates: start: 20101213, end: 20101225
  5. SALIPARA CODEINE [Concomitant]
     Indication: BRONCHITIS
     Dosage: 6 ML, UNK
     Route: 048
     Dates: start: 20101216, end: 20101225
  6. KLARICID [Concomitant]
     Indication: BRONCHITIS
     Dosage: 400 MG, UNK
     Route: 048
     Dates: start: 20101216, end: 20101220
  7. METHYCOBAL                         /00324901/ [Concomitant]
     Indication: NEUROPATHY PERIPHERAL
     Dosage: 1500 UG, UNK
     Route: 048
     Dates: start: 20101221, end: 20110113
  8. LANADEXON                          /00016001/ [Concomitant]
     Indication: MULTIPLE MYELOMA
     Dosage: 20 MG, UNK
     Route: 048
     Dates: start: 20101126, end: 20110117
  9. TRANSAMIN [Concomitant]
     Indication: BRONCHITIS
     Dosage: 750 MG, UNK
     Route: 048
     Dates: start: 20101216, end: 20101225
  10. VELCADE [Suspect]
     Indication: MULTIPLE MYELOMA
     Dosage: 2.5 MG, CYCLIC
     Route: 042
     Dates: start: 20101122, end: 20110114
  11. DECADRON [Concomitant]
     Indication: MULTIPLE MYELOMA
     Dosage: 20 MG, UNK
     Route: 042
     Dates: start: 20101122, end: 20110114
  12. OMEPRAL                            /00661201/ [Concomitant]
     Indication: REFLUX OESOPHAGITIS
     Dosage: 20 MG, UNK
     Route: 048
     Dates: start: 20090206
  13. URSO                               /00465701/ [Concomitant]
     Indication: LIVER DISORDER
     Dosage: 600 MG, UNK
     Route: 048
     Dates: start: 20090619
  14. BIOFERMIN R [Concomitant]
     Indication: ENTEROCOLITIS
     Dosage: 3 MG, UNK
     Route: 048
     Dates: start: 20090213, end: 20110203
  15. ZINC SULFATE [Concomitant]
     Indication: DYSGEUSIA
     Dosage: 300 MG, UNK
     Route: 048
     Dates: start: 20101221, end: 20110113
  16. SELTOUCH [Concomitant]
     Route: 061
  17. ZOMETA [Concomitant]
     Indication: MULTIPLE MYELOMA
     Dosage: 4 MG, UNK
     Route: 042
     Dates: start: 20090209
  18. DIFLUCAN [Concomitant]
     Indication: FUNGAL INFECTION
     Dosage: 200 MG, UNK
     Route: 048
     Dates: start: 20090213, end: 20110203

REACTIONS (2)
  - ENTEROCOLITIS [None]
  - INTERSTITIAL LUNG DISEASE [None]
